FAERS Safety Report 23060234 (Version 1)
Quarter: 2023Q4

REPORT INFORMATION
  Report Type: Spontaneous
  Country: US (occurrence: None)
  Receive Date: 20231012
  Receipt Date: 20231012
  Transmission Date: 20240110
  Serious: Yes (Hospitalization)
  Sender: FDA-Public Use
  Company Number: None

PATIENT
  Sex: Female

DRUGS (4)
  1. MYCOPHENOLATE MOFETIL [Suspect]
     Active Substance: MYCOPHENOLATE MOFETIL
     Indication: Immunology test abnormal
     Dosage: FREQUENCY : TWICE A DAY;?
     Route: 048
     Dates: start: 202212
  2. TACROLIMUS (ASCEND) [Concomitant]
  3. TYVASO DPI VINT KIT PWD [Concomitant]
  4. TYVASO DPI VINT KIT PWD (PAP [Concomitant]

REACTIONS (5)
  - Swelling [None]
  - Cough [None]
  - Weight increased [None]
  - Rhinovirus infection [None]
  - Therapy interrupted [None]
